FAERS Safety Report 8192130-6 (Version None)
Quarter: 2012Q1

REPORT INFORMATION
  Report Type: 
  Country: None (occurrence: None)
  Receive Date: 20120307
  Receipt Date: 20120305
  Transmission Date: 20120608
  Serious: Yes (Other)
  Sender: FDA-Public Use
  Company Number: US-PFIZER INC-2012004061

PATIENT
  Sex: Female
  Weight: 72.6 kg

DRUGS (8)
  1. LYRICA [Suspect]
     Indication: NEUROPATHY PERIPHERAL
     Dosage: 75 MG, 3X/DAY
     Route: 048
     Dates: start: 20100101, end: 20110101
  2. TRILEPTAL [Concomitant]
     Indication: ARACHNOIDITIS
     Dosage: UNK
     Route: 048
  3. ATENOLOL [Concomitant]
     Indication: HYPERTENSION
     Dosage: 50 MG, 1X/DAY
  4. LYRICA [Suspect]
     Indication: PERIPHERAL NERVE INJURY
  5. HYDROCHLOROTHIAZIDE [Concomitant]
     Indication: HYPERTENSION
     Dosage: 25 MG, 1X/DAY
  6. FELDENE [Concomitant]
     Indication: ARTHRITIS
     Dosage: 20 MG, DAILY
     Route: 048
  7. LYRICA [Suspect]
     Indication: ARACHNOIDITIS
     Dosage: 150 MG, 3X/DAY
     Route: 048
     Dates: start: 20110101
  8. NORVASC [Concomitant]
     Indication: HYPERTENSION
     Dosage: 5 MG, 1X/DAY

REACTIONS (3)
  - DRUG INEFFECTIVE [None]
  - BACK DISORDER [None]
  - BLOOD TRIGLYCERIDES INCREASED [None]
